FAERS Safety Report 6581356-0 (Version None)
Quarter: 2010Q1

REPORT INFORMATION
  Report Type: 
  Country: None (occurrence: None)
  Receive Date: 20100215
  Receipt Date: 20100208
  Transmission Date: 20100710
  Serious: Yes (Other)
  Sender: FDA-Public Use
  Company Number: B0629379A

PATIENT
  Sex: Female

DRUGS (1)
  1. NIQUITIN MINI LOZENGES 1.5MG [Suspect]
     Dosage: 1.5MG SINGLE DOSE
     Route: 002

REACTIONS (6)
  - CHOKING [None]
  - DYSPEPSIA [None]
  - EATING DISORDER [None]
  - PRODUCT QUALITY ISSUE [None]
  - THROAT IRRITATION [None]
  - VOMITING [None]
